FAERS Safety Report 8272619-1 (Version None)
Quarter: 2012Q2

REPORT INFORMATION
  Report Type: 
  Country: None (occurrence: None)
  Receive Date: 20120410
  Receipt Date: 20111205
  Transmission Date: 20120825
  Serious: Yes (Death)
  Sender: FDA-Public Use
  Company Number: PHHY2011US108215

PATIENT
  Age: 47 Year
  Sex: Female

DRUGS (1)
  1. METOPROLOL TARTRATE [Suspect]
     Dosage: UNK UKN, UNK

REACTIONS (1)
  - COMPLETED SUICIDE [None]
